FAERS Safety Report 7315607-1 (Version None)
Quarter: 2011Q1

REPORT INFORMATION
  Report Type: 
  Country: None (occurrence: None)
  Receive Date: 20110225
  Receipt Date: 20110222
  Transmission Date: 20110831
  Serious: Yes (Hospitalization, Other)
  Sender: FDA-Public Use
  Company Number: BR-ABBOTT-10P-020-0684457-00

PATIENT
  Sex: Male
  Weight: 106 kg

DRUGS (6)
  1. DIAZEPAM [Concomitant]
     Indication: SLEEP DISORDER THERAPY
  2. HUMIRA [Suspect]
     Indication: CROHN'S DISEASE
     Dates: start: 20100601, end: 20110115
  3. PINAVERIUM BROMIDE [Concomitant]
     Indication: GASTROINTESTINAL DISORDER
  4. SERENATA [Concomitant]
     Indication: DEPRESSION
     Route: 048
     Dates: start: 20101101, end: 20110101
  5. AMITRIPTYLINE HYDROCHLORIDE [Concomitant]
     Indication: DEPRESSION
     Route: 048
  6. DIAZEPAM [Concomitant]
     Indication: ANXIETY

REACTIONS (3)
  - ABDOMINAL PAIN [None]
  - POST PROCEDURAL COMPLICATION [None]
  - FOOD INTOLERANCE [None]
